FAERS Safety Report 5785412-6 (Version None)
Quarter: 2008Q2

REPORT INFORMATION
  Report Type: 
  Country: None (occurrence: None)
  Receive Date: 20080605
  Receipt Date: 20080417
  Transmission Date: 20081010
  Serious: No
  Sender: FDA-Public Use
  Company Number: A0710209A

PATIENT

DRUGS (1)
  1. ALLI [Suspect]
     Indication: DRUG USE FOR UNKNOWN INDICATION

REACTIONS (12)
  - DRUG INEFFECTIVE [None]
  - DYSMENORRHOEA [None]
  - FEELING COLD [None]
  - FEELING HOT [None]
  - FEELING OF BODY TEMPERATURE CHANGE [None]
  - GASTROINTESTINAL DISORDER [None]
  - INFLUENZA LIKE ILLNESS [None]
  - MENORRHAGIA [None]
  - PAIN [None]
  - RECTAL DISCHARGE [None]
  - TONSILLAR DISORDER [None]
  - WEIGHT INCREASED [None]
